FAERS Safety Report 23724592 (Version 1)
Quarter: 2024Q2

REPORT INFORMATION
  Report Type: Spontaneous
  Country: US (occurrence: US)
  Receive Date: 20240409
  Receipt Date: 20240409
  Transmission Date: 20240716
  Serious: No
  Sender: FDA-Public Use
  Company Number: US-FOUNDATIONCONSUMERHC-2023-US-036699

PATIENT
  Age: 18 Year
  Sex: Female
  Weight: 52.62 kg

DRUGS (1)
  1. PLAN B ONE-STEP [Suspect]
     Active Substance: LEVONORGESTREL
     Indication: Post coital contraception
     Dosage: 1 TABLET 10/14/2023 AND A 1/2 TABLET ON 10/29/2023
     Route: 048
     Dates: start: 20231014, end: 20231029

REACTIONS (5)
  - Dysmenorrhoea [Not Recovered/Not Resolved]
  - Headache [Recovered/Resolved]
  - Intentional product misuse [Recovered/Resolved]
  - Vaginal discharge [Not Recovered/Not Resolved]
  - Incorrect dosage administered [Recovered/Resolved]

NARRATIVE: CASE EVENT DATE: 20231016
